FAERS Safety Report 8923341 (Version 1)
Quarter: 2012Q4

REPORT INFORMATION
  Report Type: Spontaneous
  Country: US (occurrence: None)
  Receive Date: 20121114
  Receipt Date: 20121114
  Transmission Date: 20130627
  Serious: Yes (Death)
  Sender: FDA-Public Use
  Company Number: DSA_60792_2012

PATIENT
  Sex: Male

DRUGS (2)
  1. XENAZINE 12.5 MG (NOT SPECIFIED) [Suspect]
     Indication: HUNTINGTON^S DISEASE
     Dosage: 2 tablets in the AM, 2 tablets at noon, and 1 tablet at 10 PM oral)
     Route: 048
     Dates: start: 201008
  2. XENAZINE 12.5 MG (NOT SPECIFIED) [Suspect]
     Indication: HUNTINGTON^S DISEASE
     Dosage: 2 tablets in the AM, and 1 table at night oral
     Route: 048
     Dates: start: 201008, end: 201208

REACTIONS (1)
  - Death [None]
